FAERS Safety Report 8112029-0 (Version None)
Quarter: 2012Q1

REPORT INFORMATION
  Report Type: 
  Country: None (occurrence: None)
  Receive Date: 20120203
  Receipt Date: 20120126
  Transmission Date: 20120608
  Serious: Yes (Other)
  Sender: FDA-Public Use
  Company Number: US-ASTELLAS-2012US001049

PATIENT
  Sex: Male

DRUGS (1)
  1. ERLOTINIB HYDROCHLORIDE [Suspect]
     Indication: HEPATIC NEOPLASM MALIGNANT
     Dosage: 150 MG, UID/QD
     Route: 048
     Dates: start: 20111201

REACTIONS (6)
  - DYSPNOEA [None]
  - DIARRHOEA [None]
  - OFF LABEL USE [None]
  - BLOOD COUNT ABNORMAL [None]
  - DECREASED APPETITE [None]
  - SKIN LESION [None]
